FAERS Safety Report 4403534-9 (Version None)
Quarter: 2004Q3

REPORT INFORMATION
  Report Type: 
  Country: None (occurrence: None)
  Receive Date: 20040721
  Receipt Date: 20040716
  Transmission Date: 20050211
  Serious: Yes (Death, Hospitalization)
  Sender: FDA-Public Use
  Company Number: CH-BRISTOL-MYERS SQUIBB COMPANY-12644498

PATIENT
  Age: 84 Year
  Sex: Female

DRUGS (5)
  1. GLUCOPHAGE [Suspect]
     Route: 048
  2. MARCOUMAR [Suspect]
     Indication: EMBOLISM VENOUS
     Route: 048
  3. ATENOLOL [Concomitant]
  4. HYGROTON [Concomitant]
  5. BLOPRESS [Concomitant]
     Route: 048

REACTIONS (1)
  - SUBDURAL HAEMORRHAGE [None]
